FAERS Safety Report 17532077 (Version 1)
Quarter: 2020Q1

REPORT INFORMATION
  Report Type: Spontaneous
  Country: US (occurrence: US)
  Receive Date: 20200312
  Receipt Date: 20200312
  Transmission Date: 20200409
  Serious: No
  Sender: FDA-Public Use
  Company Number: US-BAUSCH-BL-2020-004228

PATIENT
  Age: 64 Year
  Sex: Female

DRUGS (2)
  1. LUMIFY [Suspect]
     Active Substance: BRIMONIDINE TARTRATE
     Indication: OCULAR HYPERAEMIA
     Dosage: 1 DROP IN THE MORNING
     Route: 047
     Dates: start: 20200203, end: 20200206
  2. VYZULTA [Suspect]
     Active Substance: LATANOPROSTENE BUNOD
     Indication: GLAUCOMA
     Route: 047
     Dates: start: 20200204

REACTIONS (2)
  - Inappropriate schedule of product administration [Unknown]
  - Drug interaction [Unknown]

NARRATIVE: CASE EVENT DATE: 202002
